FAERS Safety Report 8045564-4 (Version None)
Quarter: 2012Q1

REPORT INFORMATION
  Report Type: 
  Country: None (occurrence: None)
  Receive Date: 20120113
  Receipt Date: 20120104
  Transmission Date: 20120608
  Serious: Yes (Other)
  Sender: FDA-Public Use
  Company Number: US-PFIZER INC-2012002679

PATIENT
  Sex: Female
  Weight: 89.34 kg

DRUGS (2)
  1. LIPITOR [Suspect]
     Indication: BLOOD CHOLESTEROL INCREASED
     Dosage: 20 MG, DAILY
     Route: 048
  2. ZESTORETIC [Concomitant]
     Indication: HYPERTENSION
     Dosage: UNK, DAILY
     Route: 048

REACTIONS (1)
  - ARTHROPATHY [None]
